FAERS Safety Report 7769062-8 (Version None)
Quarter: 2011Q3

REPORT INFORMATION
  Report Type: 
  Country: None (occurrence: None)
  Receive Date: 20110922
  Receipt Date: 20090720
  Transmission Date: 20111222
  Serious: No
  Sender: FDA-Public Use
  Company Number: US-ASTRAZENECA-2009UW02005

PATIENT
  Age: 65 Year
  Sex: Female
  Weight: 80.8 kg

DRUGS (22)
  1. WELLBUTRIN [Concomitant]
  2. PRISTIQ [Concomitant]
  3. ALLI [Concomitant]
     Indication: WEIGHT CONTROL
  4. ATENOLOL [Concomitant]
     Route: 048
     Dates: start: 20010609
  5. METHYLPREDNISOLONE [Concomitant]
     Dosage: 4 MG TK UTD
     Dates: start: 20020310
  6. FOSAMAX [Concomitant]
     Indication: OSTEOPENIA
  7. GABAPENTIN [Concomitant]
  8. EFFEXOR [Concomitant]
  9. PROZAC [Concomitant]
  10. PARNATE [Concomitant]
  11. CELEXA [Concomitant]
  12. ZOLOFT [Concomitant]
  13. SEROQUEL [Suspect]
     Dosage: 25 MG TWO TABLETS QHS
     Route: 048
     Dates: start: 20020114
  14. SEROQUEL [Suspect]
     Dosage: 25 MG TO 100 MG
     Route: 048
     Dates: start: 20040105, end: 20080908
  15. CYMBALTA [Concomitant]
  16. SEROQUEL [Suspect]
     Indication: DEPRESSION
     Route: 048
     Dates: start: 19900101
  17. XANAX [Concomitant]
     Dosage: 0.5 MG - 5 MG
     Dates: start: 20011017
  18. LEXAPRO [Concomitant]
  19. SYNTHROID [Concomitant]
  20. SEROQUEL [Suspect]
     Dosage: 10-50 MG
     Route: 048
     Dates: start: 20050101, end: 20080701
  21. PAXIL [Concomitant]
  22. DAYPRO [Concomitant]

REACTIONS (4)
  - TYPE 2 DIABETES MELLITUS [None]
  - HYPERSOMNIA [None]
  - HYPERGLYCAEMIA [None]
  - MATERNAL EXPOSURE DURING PREGNANCY [None]
